FAERS Safety Report 5956320-2 (Version None)
Quarter: 2008Q4

REPORT INFORMATION
  Report Type: 
  Country: None (occurrence: None)
  Receive Date: 20081118
  Receipt Date: 20081110
  Transmission Date: 20090506
  Serious: Yes (Other)
  Sender: FDA-Public Use
  Company Number: PHBS2008IT06312

PATIENT
  Age: 32 Year
  Sex: Male

DRUGS (6)
  1. CLOZAPINE [Suspect]
     Indication: SCHIZOPHRENIA, PARANOID TYPE
     Dosage: 300 MG/DAY
  2. CLOZAPINE [Suspect]
     Dosage: 550 MG/DAY
  3. CLOZAPINE [Suspect]
     Dosage: 900 MG/DAY
  4. CLOZAPINE [Suspect]
     Dosage: 1050 MG/DAY
     Dates: start: 20070901
  5. ARIPIPRAZOLE [Suspect]
     Indication: SCHIZOPHRENIA
     Dosage: 5 MG UP TO 20 MG/DAY
  6. ARIPIPRAZOLE [Suspect]
     Dosage: 30 MG/DAY

REACTIONS (8)
  - ABNORMAL BEHAVIOUR [None]
  - APRAXIA [None]
  - DEPRESSIVE SYMPTOM [None]
  - DRUG INEFFECTIVE [None]
  - SALIVARY HYPERSECRETION [None]
  - SEDATION [None]
  - WAIST CIRCUMFERENCE INCREASED [None]
  - WEIGHT INCREASED [None]
